FAERS Safety Report 13535532 (Version 1)
Quarter: 2017Q2

REPORT INFORMATION
  Report Type: Spontaneous
  Country: US (occurrence: US)
  Receive Date: 20170511
  Receipt Date: 20170511
  Transmission Date: 20170830
  Serious: No
  Sender: FDA-Public Use
  Company Number: US-BRISTOL-MYERS SQUIBB COMPANY-BMS-2017-037968

PATIENT
  Age: 57 Year
  Sex: Female
  Weight: 72.56 kg

DRUGS (1)
  1. ORENCIA [Suspect]
     Active Substance: ABATACEPT
     Indication: RHEUMATOID ARTHRITIS
     Dosage: UNK UNK, QMO
     Route: 042

REACTIONS (3)
  - Drug dose omission [Unknown]
  - Rash generalised [Unknown]
  - Pruritus [Unknown]

NARRATIVE: CASE EVENT DATE: 20170428
